FAERS Safety Report 16049541 (Version 1)
Quarter: 2019Q1

REPORT INFORMATION
  Report Type: Spontaneous
  Country: US (occurrence: US)
  Receive Date: 20190307
  Receipt Date: 20190307
  Transmission Date: 20190418
  Serious: No
  Sender: FDA-Public Use
  Company Number: US-PFIZER INC-2018063719

PATIENT
  Age: 60 Year
  Sex: Female
  Weight: 97.52 kg

DRUGS (3)
  1. CALCIUM [Concomitant]
     Active Substance: CALCIUM
     Indication: GASTRECTOMY
     Dosage: UNK
     Dates: start: 2016
  2. EUCRISA [Suspect]
     Active Substance: CRISABOROLE
     Indication: ECZEMA
     Dosage: UNK UNK, 2X/DAY  (APPLIED TWICE DAILY TO LEGS ABOVE THE ANKLE)
     Dates: end: 201901
  3. VITAMIN B [Concomitant]
     Active Substance: VITAMIN B
     Indication: GASTRECTOMY
     Dosage: UNK
     Dates: start: 2016

REACTIONS (5)
  - Application site erythema [Recovered/Resolved]
  - Application site rash [Recovered/Resolved]
  - Application site swelling [Recovered/Resolved]
  - Application site pruritus [Recovered/Resolved]
  - Application site irritation [Recovered/Resolved]

NARRATIVE: CASE EVENT DATE: 201901
